FAERS Safety Report 6835216-8 (Version None)
Quarter: 2010Q3

REPORT INFORMATION
  Report Type: 
  Country: None (occurrence: None)
  Receive Date: 20100713
  Receipt Date: 20100205
  Transmission Date: 20110219
  Serious: Yes (Other)
  Sender: FDA-Public Use
  Company Number: US-ASTRAZENECA-2009UW17679

PATIENT
  Sex: Female

DRUGS (5)
  1. SEROQUEL [Suspect]
     Route: 048
     Dates: start: 20031110, end: 20060905
  2. ZYPREXA [Suspect]
     Dates: start: 20070410
  3. MOTRIN [Concomitant]
     Dosage: 800 MG TID FOR 14 DAYS
     Route: 048
     Dates: start: 20050526
  4. OMEPRAZOLE [Concomitant]
     Dosage: 20 MG QD BEFORE MEAL
     Route: 048
     Dates: start: 20060526
  5. METFORMIN HYDROCHLORIDE [Concomitant]
     Dosage: 500 MG QAM
     Dates: start: 20050526

REACTIONS (5)
  - DIABETES MELLITUS [None]
  - DIABETIC NEUROPATHY [None]
  - GESTATIONAL DIABETES [None]
  - HYPOGLYCAEMIA [None]
  - WEIGHT INCREASED [None]
